FAERS Safety Report 6404720-9 (Version None)
Quarter: 2009Q4

REPORT INFORMATION
  Report Type: 
  Country: None (occurrence: None)
  Receive Date: 20091016
  Receipt Date: 20091008
  Transmission Date: 20100525
  Serious: Yes (Other)
  Sender: FDA-Public Use
  Company Number: US-CELGENEUS-163-20785-09100930

PATIENT
  Sex: Female

DRUGS (2)
  1. THALOMID [Suspect]
     Indication: MULTIPLE MYELOMA
     Route: 048
     Dates: start: 20060101
  2. THALOMID [Suspect]
     Dosage: 200-400 MG
     Route: 048
     Dates: start: 20020501, end: 20050101

REACTIONS (1)
  - RENAL FAILURE CHRONIC [None]
